FAERS Safety Report 12764031 (Version 2)
Quarter: 2016Q4

REPORT INFORMATION
  Report Type: Spontaneous
  Country: JP (occurrence: JP)
  Receive Date: 20160920
  Receipt Date: 20161003
  Transmission Date: 20170207
  Serious: Yes (Disabling, Other)
  Sender: FDA-Public Use
  Company Number: JP-TEVA-CIP09001527

PATIENT
  Age: 77 Year
  Sex: Female

DRUGS (3)
  1. RISEDRONATE (RISEDRONATE SODIUM) [Suspect]
     Active Substance: RISEDRONATE SODIUM
     Indication: OSTEOPOROSIS
     Route: 048
     Dates: end: 200706
  2. AMLODIN (AMLODIPINE BESILATE) [Concomitant]
     Dosage: 5 MILLIGRAM DAILY;
  3. MELOXICAM (MELOXICAM) [Concomitant]
     Active Substance: MELOXICAM
     Dosage: 10 MILLIGRAM DAILY;

REACTIONS (10)
  - Gingival swelling [Unknown]
  - Oral cavity fistula [Unknown]
  - Osteonecrosis of jaw [Recovered/Resolved]
  - Osteosclerosis [Unknown]
  - Primary sequestrum [Unknown]
  - Periodontitis [Unknown]
  - Pain in jaw [Unknown]
  - Purulence [Recovered/Resolved]
  - Tooth extraction [Unknown]
  - Exposed bone in jaw [Recovered/Resolved]
